FAERS Safety Report 13963728 (Version 1)
Quarter: 2017Q3

REPORT INFORMATION
  Report Type: Spontaneous
  Country: US (occurrence: US)
  Receive Date: 20170913
  Receipt Date: 20170913
  Transmission Date: 20171128
  Serious: No
  Sender: FDA-Public Use
  Company Number: US-JNJFOC-20160925009

PATIENT
  Sex: Female

DRUGS (13)
  1. TRAMADOL HYDROCHLORIDE. [Suspect]
     Active Substance: TRAMADOL HYDROCHLORIDE
     Indication: PRODUCT USED FOR UNKNOWN INDICATION
     Route: 065
  2. ADVIL [Concomitant]
     Active Substance: IBUPROFEN
     Route: 048
  3. TYLENOL SINUS CONGESTION + PAIN SEVERE [Concomitant]
     Route: 048
  4. FEMARA [Concomitant]
     Active Substance: LETROZOLE
     Route: 048
  5. LEXAPRO [Concomitant]
     Active Substance: ESCITALOPRAM OXALATE
     Route: 048
  6. HYDROCODONE BITARTRATE AND ACETAMINOPHEN [Concomitant]
     Active Substance: ACETAMINOPHEN\HYDROCODONE BITARTRATE
     Indication: PAIN
     Route: 048
     Dates: start: 20140923
  7. CLARITIN [Concomitant]
     Active Substance: LORATADINE
     Route: 048
  8. ZOFRAN [Concomitant]
     Active Substance: ONDANSETRON HYDROCHLORIDE
     Indication: NAUSEA
     Route: 048
  9. BENTYL [Concomitant]
     Active Substance: DICYCLOMINE HYDROCHLORIDE
     Route: 048
  10. REGLAN [Concomitant]
     Active Substance: METOCLOPRAMIDE HYDROCHLORIDE
     Indication: NAUSEA
     Route: 048
  11. SULFONAMIDES [Concomitant]
     Active Substance: UNSPECIFIED INGREDIENT
     Route: 065
  12. IBRANCE [Concomitant]
     Active Substance: PALBOCICLIB
     Route: 048
  13. XELODA [Concomitant]
     Active Substance: CAPECITABINE
     Route: 065

REACTIONS (1)
  - Drug hypersensitivity [Unknown]
